FAERS Safety Report 10208744 (Version 1)
Quarter: 2014Q2

REPORT INFORMATION
  Report Type: Spontaneous
  Country: US (occurrence: US)
  Receive Date: 20140530
  Receipt Date: 20140530
  Transmission Date: 20141212
  Serious: Yes (Other)
  Sender: FDA-Public Use
  Company Number: US-ELI_LILLY_AND_COMPANY-US201405006428

PATIENT
  Sex: Female

DRUGS (3)
  1. HUMALOG 25% LISPRO, 75% NPL [Suspect]
     Dosage: 30 U, TID
     Route: 065
     Dates: start: 201403
  2. HUMALOG 25% LISPRO, 75% NPL [Suspect]
     Dosage: 30 U, TID
     Route: 065
     Dates: start: 201403
  3. HUMALOG 25% LISPRO, 75% NPL [Suspect]
     Dosage: 30 U, TID
     Route: 065
     Dates: start: 201403

REACTIONS (2)
  - Eye haemorrhage [Unknown]
  - Visual impairment [Unknown]
